FAERS Safety Report 16771390 (Version 1)
Quarter: 2019Q3

REPORT INFORMATION
  Report Type: Spontaneous
  Country: US (occurrence: US)
  Receive Date: 20190904
  Receipt Date: 20190904
  Transmission Date: 20191005
  Serious: Yes (Other)
  Sender: FDA-Public Use
  Company Number: US-PENTEC HEALTH-2019PEN00047

PATIENT
  Age: 71 Year
  Sex: Male

DRUGS (2)
  1. VANCOMYCIN HYDROCHLORIDE. [Suspect]
     Active Substance: VANCOMYCIN HYDROCHLORIDE
     Indication: STAPHYLOCOCCAL INFECTION
     Dosage: 1.5 G, EVERY 12 HOURS
     Route: 042
  2. VANCOMYCIN HYDROCHLORIDE. [Suspect]
     Active Substance: VANCOMYCIN HYDROCHLORIDE
     Indication: OSTEOMYELITIS

REACTIONS (2)
  - Thrombocytopenia [Recovered/Resolved]
  - Gastrointestinal haemorrhage [Recovered/Resolved]
